FAERS Safety Report 25199628 (Version 1)
Quarter: 2025Q2

REPORT INFORMATION
  Report Type: Spontaneous
  Country: US (occurrence: US)
  Receive Date: 20250415
  Receipt Date: 20250415
  Transmission Date: 20250716
  Serious: No
  Sender: Unknown Manufacturer
  Company Number: US-THERATECHNOLOGIES INC.-2025-THE-TES-000089

PATIENT

DRUGS (1)
  1. EGRIFTA SV [Suspect]
     Active Substance: TESAMORELIN ACETATE
     Indication: Lipodystrophy acquired
     Dosage: 1.4 MG, QD
     Route: 058
     Dates: start: 20250327

REACTIONS (2)
  - Injection site pain [Recovered/Resolved]
  - Multiple use of single-use product [Unknown]

NARRATIVE: CASE EVENT DATE: 20250403
